FAERS Safety Report 5976368-1 (Version None)
Quarter: 2008Q4

REPORT INFORMATION
  Report Type: 
  Country: None (occurrence: None)
  Receive Date: 20081202
  Receipt Date: 20081125
  Transmission Date: 20090506
  Serious: Yes (Other)
  Sender: FDA-Public Use
  Company Number: DE-ROXANE LABORATORIES, INC.-2008-RO-00287RO

PATIENT
  Age: 28 Year
  Sex: Female

DRUGS (6)
  1. PREDNISONE TAB [Suspect]
     Indication: PEMPHIGUS
     Dosage: 30MG
  2. PREDNISONE TAB [Suspect]
     Dosage: 20MG
  3. MYCOPHENOLATE MOFETIL [Suspect]
     Indication: PEMPHIGUS
     Dosage: 2G
  4. RITUXIMAB [Suspect]
     Indication: PEMPHIGUS
  5. VALACYCLOVIR HCL [Concomitant]
     Indication: HERPES SIMPLEX
     Dosage: 500MG
     Route: 048
  6. ACYCLOVIR [Concomitant]
     Indication: HERPES SIMPLEX
     Dosage: 2G
     Route: 048

REACTIONS (1)
  - HERPES SIMPLEX [None]
